FAERS Safety Report 20602808 (Version 1)
Quarter: 2022Q1

REPORT INFORMATION
  Report Type: Spontaneous
  Country: ES (occurrence: ES)
  Receive Date: 20220316
  Receipt Date: 20220316
  Transmission Date: 20220423
  Serious: Yes (Hospitalization)
  Sender: FDA-Public Use
  Company Number: None

PATIENT
  Age: 66 Year
  Sex: Male

DRUGS (2)
  1. CLOPIDOGREL [Interacting]
     Active Substance: CLOPIDOGREL BISULFATE
     Indication: Ischaemic stroke
     Dosage: INITIAL DOSE OF 300MG, FOLLOWED BY 75MG DAILY, UNIT DOSE: 75 MG
     Route: 048
     Dates: start: 20211213
  2. ASPIRIN [Interacting]
     Active Substance: ASPIRIN
     Indication: Ischaemic stroke
     Dosage: INITIAL DOSE OF 500MG, FOLLOWED BY 100MG DAILY, ACIDO ACETILSALICILICO, UNIT DOSE: 100 MG
     Route: 048
     Dates: start: 20211213

REACTIONS (2)
  - Rectal haemorrhage [Recovering/Resolving]
  - Drug interaction [Unknown]

NARRATIVE: CASE EVENT DATE: 20220216
